FAERS Safety Report 5942938-X (Version None)
Quarter: 2008Q4

REPORT INFORMATION
  Report Type: 
  Country: None (occurrence: None)
  Receive Date: 20081106
  Receipt Date: 20081105
  Transmission Date: 20090506
  Serious: Yes (Hospitalization)
  Sender: FDA-Public Use
  Company Number: AT-BRISTOL-MYERS SQUIBB COMPANY-14380570

PATIENT
  Age: 27 Year
  Weight: 120 kg

DRUGS (5)
  1. ABILIFY [Suspect]
     Indication: SCHIZOPHRENIA
     Route: 048
     Dates: end: 20080601
  2. ZYPREXA [Suspect]
     Indication: SCHIZOPHRENIA
     Dosage: 20 MG/D: ONGOING - MID OF JUN08 10 MG/D: 17JUN08 - 17JUN08  30 MG/D: 18JUN08 - 18JUN08
     Route: 048
     Dates: end: 20080618
  3. HALDOL [Suspect]
     Indication: SCHIZOPHRENIA
     Dosage: 17JUN08 - 18JUN08: 10 MG DAILY 19JUN08 - 19JUN08: 5 MG DAILY
     Route: 048
     Dates: start: 20080617, end: 20080619
  4. TEMESTA [Concomitant]
     Dosage: 17JUN08 - 17JUN08: 2.5 MG DAILY 18JUN08 - 18JUN08: 3 MG DAILY 19JUN08 - ONGOING: 7.5 MG DAILY
     Route: 048
     Dates: start: 20080617
  5. CO-DILATREND [Concomitant]
     Dosage: DOSE 25/12.5MG TO 18-JUN-08, 12.5MG/6.25MG FROM 19-JUN-08 AND ONGOING
     Route: 048

REACTIONS (2)
  - ACUTE PSYCHOSIS [None]
  - RHABDOMYOLYSIS [None]
